FAERS Safety Report 21161096 (Version 7)
Quarter: 2023Q1

REPORT INFORMATION
  Report Type: Spontaneous
  Country: JP (occurrence: JP)
  Receive Date: 20220802
  Receipt Date: 20230313
  Transmission Date: 20230417
  Serious: Yes (Life-Threatening, Hospitalization, Other)
  Sender: FDA-Public Use
  Company Number: JP-ONO-2022JP021177

PATIENT
  Age: 6 Decade
  Sex: Male

DRUGS (1)
  1. OPDIVO [Suspect]
     Active Substance: NIVOLUMAB
     Indication: Gastric cancer
     Dosage: UNK
     Route: 041
     Dates: start: 20210701

REACTIONS (5)
  - Adrenal insufficiency [Recovered/Resolved]
  - Catheter site erythema [Recovering/Resolving]
  - Fracture [Unknown]
  - Device related infection [Unknown]
  - Septic shock [Unknown]

NARRATIVE: CASE EVENT DATE: 20220228
